FAERS Safety Report 24840541 (Version 1)
Quarter: 2025Q1

REPORT INFORMATION
  Report Type: Spontaneous
  Country: US (occurrence: US)
  Receive Date: 20250114
  Receipt Date: 20250114
  Transmission Date: 20250409
  Serious: Yes (Hospitalization, Other)
  Sender: SANOFI AVENTIS
  Company Number: US-SANOFI-02367285

PATIENT
  Age: 29 Year
  Sex: Female

DRUGS (1)
  1. LOVENOX [Suspect]
     Active Substance: ENOXAPARIN SODIUM
     Dosage: 80 IU, BID (80.000[IU] INTERNATION UNIT(S) BID)

REACTIONS (3)
  - Hospitalisation [Unknown]
  - Systemic lupus erythematosus [Unknown]
  - Exposure during pregnancy [Unknown]
